FAERS Safety Report 16386309 (Version 14)
Quarter: 2021Q1

REPORT INFORMATION
  Report Type: Report from Study
  Country: NL (occurrence: NL)
  Receive Date: 20190603
  Receipt Date: 20210316
  Transmission Date: 20210419
  Serious: Yes (Other)
  Sender: FDA-Public Use
  Company Number: NL-INCYTE CORPORATION-2019IN005569

PATIENT

DRUGS (11)
  1. JAKAVI [Suspect]
     Active Substance: RUXOLITINIB
     Dosage: 30 OT
     Route: 048
     Dates: start: 20200403
  2. ANAGRELIDE. [Concomitant]
     Active Substance: ANAGRELIDE HYDROCHLORIDE
     Indication: POLYCYTHAEMIA VERA
     Dosage: 0.5 OT
     Route: 065
     Dates: start: 20171211, end: 20180301
  3. SUFENTANIL [Concomitant]
     Active Substance: SUFENTANIL
     Indication: PROPHYLAXIS
     Dosage: 5
     Route: 065
     Dates: start: 20200320, end: 20200402
  4. MEROPENEM. [Concomitant]
     Active Substance: MEROPENEM
     Indication: PROPHYLAXIS
     Dosage: UNK
     Route: 065
     Dates: start: 20200323, end: 20200324
  5. CEFTRIAXONE. [Concomitant]
     Active Substance: CEFTRIAXONE
     Indication: PROPHYLAXIS
     Dosage: 2 OT
     Route: 065
     Dates: start: 20200319, end: 20200322
  6. COLECALCIFEROL;MAGNESIUM CITRATE [Concomitant]
     Indication: VITAMIN SUPPLEMENTATION
     Dosage: 2 OT (25000 IE/ML)
     Route: 065
     Dates: start: 20170731
  7. JAKAVI [Suspect]
     Active Substance: RUXOLITINIB
     Indication: POLYCYTHAEMIA VERA
     Dosage: 10 OT
     Route: 048
     Dates: start: 20180423, end: 20180528
  8. CEFTRIAXONE. [Concomitant]
     Active Substance: CEFTRIAXONE
     Indication: C-REACTIVE PROTEIN INCREASED
     Dosage: 2 OT
     Route: 065
     Dates: start: 20200324, end: 20200325
  9. JAKAVI [Suspect]
     Active Substance: RUXOLITINIB
     Dosage: 30 OT
     Route: 048
     Dates: start: 20180904, end: 20200319
  10. LEVOTHYROXINE. [Concomitant]
     Active Substance: LEVOTHYROXINE
     Indication: HYPOTHYROIDISM
     Dosage: 88 OT
     Route: 065
     Dates: start: 20170731
  11. JAKAVI [Suspect]
     Active Substance: RUXOLITINIB
     Dosage: 20 OT
     Route: 048
     Dates: start: 20180529, end: 20180903

REACTIONS (22)
  - Drug ineffective [Recovered/Resolved]
  - Weight increased [Recovered/Resolved]
  - Muscle injury [Not Recovered/Not Resolved]
  - Parotitis [Recovered/Resolved]
  - Sleep apnoea syndrome [Not Recovered/Not Resolved]
  - Weight increased [Not Recovered/Not Resolved]
  - Dry eye [Not Recovered/Not Resolved]
  - Flatulence [Recovered/Resolved]
  - Influenza like illness [Recovered/Resolved]
  - Hypertension [Not Recovered/Not Resolved]
  - Non-cardiac chest pain [Recovered/Resolved]
  - Anxiety [Recovered/Resolved]
  - Bronchitis [Recovered/Resolved]
  - Conjunctivitis [Recovered/Resolved]
  - Pneumonia [Recovered/Resolved]
  - Concomitant disease aggravated [Not Recovered/Not Resolved]
  - Bone pain [Recovered/Resolved]
  - Herpes zoster [Recovered/Resolved with Sequelae]
  - Abdominal distension [Recovered/Resolved]
  - Cholelithiasis [Not Recovered/Not Resolved]
  - Headache [Recovered/Resolved]
  - Pneumonia [Recovered/Resolved]

NARRATIVE: CASE EVENT DATE: 20180528
